FAERS Safety Report 16375465 (Version 1)
Quarter: 2019Q2

REPORT INFORMATION
  Report Type: Spontaneous
  Country: DE (occurrence: DE)
  Receive Date: 20190531
  Receipt Date: 20190531
  Transmission Date: 20190711
  Serious: Yes (Hospitalization, Other)
  Sender: FDA-Public Use
  Company Number: DE-SUN PHARMACEUTICAL INDUSTRIES LTD-2019R1-209382

PATIENT
  Age: 67 Year
  Sex: Male

DRUGS (5)
  1. HYPNOREX [Interacting]
     Active Substance: LITHIUM CARBONATE
     Dosage: 1 GRAM, DAILY
     Route: 065
     Dates: start: 2000, end: 2001
  2. HYPNOREX [Interacting]
     Active Substance: LITHIUM CARBONATE
     Dosage: 1.2 GRAM, DAILY
     Route: 065
     Dates: start: 2001, end: 2005
  3. LISINOPRIL. [Suspect]
     Active Substance: LISINOPRIL
     Indication: HYPERTENSION
     Dosage: 20 MILLIGRAM, UNK
     Dates: start: 2001
  4. HYPNOREX [Interacting]
     Active Substance: LITHIUM CARBONATE
     Indication: BIPOLAR DISORDER
     Dosage: 0.8 GRAM, DAILY
     Route: 065
     Dates: start: 1998, end: 2000
  5. QUILONUM [Interacting]
     Active Substance: LITHIUM
     Indication: BIPOLAR DISORDER
     Dosage: 1.35 GRAM, DAILY
     Route: 065
     Dates: start: 2005

REACTIONS (13)
  - Delirium [Unknown]
  - Ataxia [Recovered/Resolved]
  - Agitation [Recovered/Resolved]
  - Dysphagia [Recovered/Resolved]
  - Tremor [Unknown]
  - Disorientation [Recovered/Resolved]
  - Apraxia [Recovered/Resolved]
  - Aphasia [Recovered/Resolved]
  - Hypomania [Unknown]
  - Fluid intake reduced [Unknown]
  - Drug interaction [Unknown]
  - Toxicity to various agents [Unknown]
  - Nasopharyngitis [Unknown]
